FAERS Safety Report 8300679-8 (Version None)
Quarter: 2012Q2

REPORT INFORMATION
  Report Type: 
  Country: None (occurrence: None)
  Receive Date: 20120420
  Receipt Date: 20120410
  Transmission Date: 20120825
  Serious: Yes (Other)
  Sender: FDA-Public Use
  Company Number: PHHY2012KR020495

PATIENT
  Sex: Male
  Weight: 59 kg

DRUGS (2)
  1. EXJADE [Suspect]
     Indication: MYELODYSPLASTIC SYNDROME
     Dosage: 625 MG/ DAY
     Route: 048
     Dates: start: 20090304
  2. EXJADE [Suspect]
     Indication: IRON OVERLOAD

REACTIONS (4)
  - HAEMOGLOBIN DECREASED [None]
  - OEDEMA DUE TO RENAL DISEASE [None]
  - PLATELET COUNT DECREASED [None]
  - DRUG INEFFECTIVE [None]
